FAERS Safety Report 19180750 (Version 2)
Quarter: 2021Q2

REPORT INFORMATION
  Report Type: Spontaneous
  Country: CH (occurrence: CH)
  Receive Date: 20210426
  Receipt Date: 20210428
  Transmission Date: 20210717
  Serious: No
  Sender: FDA-Public Use
  Company Number: CH-ELI_LILLY_AND_COMPANY-CH202104007458

PATIENT
  Age: 49 Year
  Sex: Male

DRUGS (2)
  1. RETEVMO [Suspect]
     Active Substance: SELPERCATINIB
     Dosage: 40 MG, OTHER
     Route: 065
  2. RETEVMO [Suspect]
     Active Substance: SELPERCATINIB
     Indication: METASTATIC GASTRIC CANCER
     Dosage: 80 MG, OTHER
     Route: 065

REACTIONS (1)
  - Abdominal pain [Unknown]
